FAERS Safety Report 5734793-8 (Version None)
Quarter: 2008Q2

REPORT INFORMATION
  Report Type: 
  Country: None (occurrence: None)
  Receive Date: 20080501
  Receipt Date: 20080201
  Transmission Date: 20081010
  Serious: Yes (Hospitalization)
  Sender: FDA-Public Use
  Company Number: 165288USA

PATIENT
  Age: 66 Year
  Sex: Female

DRUGS (6)
  1. IFOSFAMIDE INJECTION, 50 MG/ML, PACKAGED IN 1 GR/20 ML AND 3 GR/60 ML [Suspect]
     Indication: UTERINE CANCER
     Dosage: 2GM/500ML NORMAL SALINE (2 GRAM),INTRAVENOUS DRIP
     Route: 041
     Dates: start: 20071211
  2. CISPLATIN [Suspect]
     Indication: UTERINE CANCER
     Dosage: INTRAVENOUS DRIP
     Route: 041
     Dates: start: 20071211
  3. BREVA [Concomitant]
  4. INEGY [Concomitant]
  5. LISINOPRIL [Concomitant]
  6. METOPROLOL SUCCINATE [Concomitant]

REACTIONS (2)
  - CONFUSIONAL STATE [None]
  - FALL [None]
